FAERS Safety Report 7318614-8 (Version None)
Quarter: 2011Q1

REPORT INFORMATION
  Report Type: 
  Country: None (occurrence: None)
  Receive Date: 20110228
  Receipt Date: 20110218
  Transmission Date: 20110831
  Serious: Yes (Hospitalization, Other)
  Sender: FDA-Public Use
  Company Number: CH-ASTELLAS-2011EU000887

PATIENT
  Age: 50 Year
  Sex: Female

DRUGS (8)
  1. SOLU-MEDROL [Concomitant]
     Dosage: 250 MG, UID/QD
     Route: 042
     Dates: start: 20101211, end: 20101214
  2. INSULIN PORCINE [Concomitant]
     Indication: DIABETES MELLITUS
     Dosage: UNK
     Route: 065
  3. PROGRAF [Suspect]
     Indication: RENAL TRANSPLANT
     Dosage: 4 G, BID
     Route: 042
     Dates: start: 20101210, end: 20101217
  4. KIOVIG [Concomitant]
     Dosage: 40 G, UNKNOWN/D
     Route: 042
     Dates: start: 20101214, end: 20101216
  5. KIOVIG [Concomitant]
     Dosage: UNK
     Route: 065
  6. CELL CEPT [Concomitant]
     Dosage: 1 G, BID
     Route: 042
     Dates: end: 20101216
  7. KIOVIG [Concomitant]
     Dosage: 30 G, UNKNOWN/D
     Route: 042
     Dates: start: 20101220
  8. THYMOGLOBULIN [Concomitant]
     Dosage: 125 MG, UID/QD
     Route: 042
     Dates: start: 20101211, end: 20101213

REACTIONS (4)
  - CONVULSION [None]
  - CONFUSIONAL STATE [None]
  - AMAUROSIS FUGAX [None]
  - HEADACHE [None]
